FAERS Safety Report 15735987 (Version 3)
Quarter: 2019Q1

REPORT INFORMATION
  Report Type: Report from Study
  Country: US (occurrence: US)
  Receive Date: 20181218
  Receipt Date: 20190124
  Transmission Date: 20190417
  Serious: Yes (Hospitalization, Other)
  Sender: FDA-Public Use
  Company Number: US-ALEXION PHARMACEUTICALS INC.-A201816475

PATIENT
  Sex: Male

DRUGS (1)
  1. SOLIRIS [Suspect]
     Active Substance: ECULIZUMAB
     Indication: MYASTHENIA GRAVIS
     Route: 065

REACTIONS (7)
  - Renal failure [Unknown]
  - Impaired healing [Unknown]
  - Atrial fibrillation [Unknown]
  - Renal impairment [Unknown]
  - Peripheral swelling [Unknown]
  - Thrombosis [Unknown]
  - Cataract [Unknown]
